FAERS Safety Report 25889410 (Version 4)
Quarter: 2025Q4

REPORT INFORMATION
  Report Type: Report from Study
  Country: US (occurrence: US)
  Receive Date: 20251007
  Receipt Date: 20251107
  Transmission Date: 20260117
  Serious: Yes (Hospitalization)
  Sender: MIRUM PHARMACEUTICALS
  Company Number: US-MIRUM PHARMACEUTICALS, INC.-US-MIR-25-00702

PATIENT

DRUGS (15)
  1. LIVMARLI [Suspect]
     Active Substance: MARALIXIBAT CHLORIDE
     Indication: Alagille syndrome
     Dosage: 365 MICROGRAM/KILOGRAM, QD
     Route: 048
     Dates: start: 20250305, end: 2025
  2. LIVMARLI [Suspect]
     Active Substance: MARALIXIBAT CHLORIDE
     Dosage: 1 MILLILITER, (9.5 MG)
     Route: 048
     Dates: start: 20240807
  3. LIVMARLI [Suspect]
     Active Substance: MARALIXIBAT CHLORIDE
     Dosage: 418 MICROGRAM/KILOGRAM, QD
     Route: 048
     Dates: start: 20230220
  4. DRISDOL [Concomitant]
     Active Substance: ERGOCALCIFEROL
     Indication: Hypovitaminosis
     Dosage: 5 MILLILITER, WEEKLY (200 MCG/ML (8,000 UNIT/ML) ORAL DROPS)
     Route: 048
     Dates: start: 20240808
  5. MEPHYTON [Concomitant]
     Active Substance: PHYTONADIONE
     Indication: Vitamin K deficiency
     Dosage: 2.5 MILLIGRAM (5 MG ORAL TABLET, TAKE 1/2 TABLET BY MOUTH ON MONDAY, WEDNESDAY AND FRIDAY)
     Route: 048
     Dates: start: 20150420, end: 20250719
  6. RIFAMPIN [Concomitant]
     Active Substance: RIFAMPIN
     Indication: Pruritus
     Dosage: 100 MILLIGRAM, BID (60 MG/ML ORAL SUSPENSION)
     Route: 048
  7. RIFAMPIN [Concomitant]
     Active Substance: RIFAMPIN
     Dosage: 2.5 MILLIGRAM/KILOGRAM, BID
     Route: 065
     Dates: start: 20150701
  8. RIFAMPIN [Concomitant]
     Active Substance: RIFAMPIN
     Dosage: 150 MILLIGRAM, BID
     Route: 048
     Dates: end: 20250719
  9. URSODIOL [Concomitant]
     Active Substance: URSODIOL
     Indication: Pruritus
     Dosage: 250 MILLIGRAM, BID (TAKE 250 MG BY MOUTH 2 TIMES A DAY)
     Route: 048
     Dates: start: 20240807, end: 20250719
  10. URSODIOL [Concomitant]
     Active Substance: URSODIOL
     Dosage: 40 MILLIGRAM, BID (40 MG TWICE A DAY)
     Route: 065
     Dates: start: 20150422
  11. ATARAX [Concomitant]
     Active Substance: HYDROXYZINE HYDROCHLORIDE
     Indication: Pruritus
     Dosage: 10 MILLIGRAM, BID (TAKE 10 MG BY MOUTH 2 TIMES A DAY AS NEEDED - ORAL)
     Route: 048
     Dates: start: 20240912
  12. ATARAX [Concomitant]
     Active Substance: HYDROXYZINE HYDROCHLORIDE
     Dosage: 15 MILLIGRAM, BID (7.5 ML)
     Route: 048
     Dates: end: 20250719
  13. AQUA E [Concomitant]
     Indication: Vitamin E deficiency
     Dosage: 150 UNITS, QD (150 UNIT(S) PO EVERY DAY)
     Route: 048
  14. BIO D MULSION [Concomitant]
     Dosage: 2000 (0.04 ML) (1 DROP) INTERNATIONAL UNIT, QMWF
     Route: 048
     Dates: end: 20250719
  15. VITAMIN K [Concomitant]
     Active Substance: PHYTONADIONE
     Indication: International normalised ratio increased
     Dosage: 10 MILLIGRAM, SINGLE
     Route: 042

REACTIONS (2)
  - Fatigue [Recovered/Resolved]
  - Blood bilirubin increased [Recovered/Resolved]

NARRATIVE: CASE EVENT DATE: 20250717
